FAERS Safety Report 6644903-6 (Version None)
Quarter: 2010Q1

REPORT INFORMATION
  Report Type: 
  Country: None (occurrence: None)
  Receive Date: 20100322
  Receipt Date: 20100315
  Transmission Date: 20100710
  Serious: Yes (Other)
  Sender: FDA-Public Use
  Company Number: CHPA2010US05294

PATIENT
  Age: 29 Year
  Sex: Female

DRUGS (2)
  1. VOLTAREN [Suspect]
     Indication: TENDONITIS
     Dosage: 4 G, TID
     Route: 061
     Dates: start: 20100304, end: 20100309
  2. ALEVE [Suspect]
     Dosage: UNK, ONCE A DAY
     Route: 048

REACTIONS (5)
  - DIARRHOEA [None]
  - DIZZINESS [None]
  - NAUSEA [None]
  - OFF LABEL USE [None]
  - THERAPEUTIC RESPONSE UNEXPECTED [None]
